FAERS Safety Report 11768551 (Version 3)
Quarter: 2016Q1

REPORT INFORMATION
  Report Type: Spontaneous
  Country: US (occurrence: US)
  Receive Date: 20151123
  Receipt Date: 20160329
  Transmission Date: 20160525
  Serious: Yes (Hospitalization, Other)
  Sender: FDA-Public Use
  Company Number: US-AUROBINDO-AUR-APL-2015-09590

PATIENT
  Age: 85 Year
  Sex: Female

DRUGS (16)
  1. OMEPRAZOLE. [Concomitant]
     Active Substance: OMEPRAZOLE
     Indication: PRODUCT USED FOR UNKNOWN INDICATION
     Route: 048
  2. LISINOPRIL. [Concomitant]
     Active Substance: LISINOPRIL
     Indication: PRODUCT USED FOR UNKNOWN INDICATION
     Route: 048
  3. CALCIUM CARBONATE. [Concomitant]
     Active Substance: CALCIUM CARBONATE
     Indication: PRODUCT USED FOR UNKNOWN INDICATION
     Route: 048
  4. AZITHROMYCIN ANHYDROUS. [Concomitant]
     Active Substance: AZITHROMYCIN ANHYDROUS
     Indication: PNEUMONIA
  5. EXEMESTANE. [Concomitant]
     Active Substance: EXEMESTANE
     Indication: PRODUCT USED FOR UNKNOWN INDICATION
     Route: 048
  6. MOXIFLOXACIN. [Suspect]
     Active Substance: MOXIFLOXACIN
     Indication: PNEUMONIA
     Dosage: UNK
     Route: 065
  7. DIGOXIN. [Concomitant]
     Active Substance: DIGOXIN
     Indication: PRODUCT USED FOR UNKNOWN INDICATION
     Route: 048
  8. PYRIDOSTIGMINE [Concomitant]
     Active Substance: PYRIDOSTIGMINE
     Indication: PRODUCT USED FOR UNKNOWN INDICATION
     Dosage: 180 MG, UNK
     Route: 048
  9. AZATHIOPRINE. [Concomitant]
     Active Substance: AZATHIOPRINE
     Indication: PRODUCT USED FOR UNKNOWN INDICATION
     Route: 048
  10. PREDNISONE. [Concomitant]
     Active Substance: PREDNISONE
     Indication: PRODUCT USED FOR UNKNOWN INDICATION
     Dosage: 7.5 MG EVERY OTHER DAY
     Route: 048
  11. ACETYLSALICYLIC ACID [Concomitant]
     Active Substance: ASPIRIN
     Indication: PRODUCT USED FOR UNKNOWN INDICATION
     Route: 048
  12. FUROSEMIDE. [Concomitant]
     Active Substance: FUROSEMIDE
     Indication: PRODUCT USED FOR UNKNOWN INDICATION
     Route: 048
  13. AZTREONAM. [Concomitant]
     Active Substance: AZTREONAM
     Indication: PNEUMONIA
  14. MOXIFLOXACIN. [Suspect]
     Active Substance: MOXIFLOXACIN
     Dosage: UNK,TWO DOSES
  15. RIVAROXABAN [Concomitant]
     Active Substance: RIVAROXABAN
     Indication: PRODUCT USED FOR UNKNOWN INDICATION
     Route: 048
  16. CARVEDILOL. [Concomitant]
     Active Substance: CARVEDILOL
     Indication: PRODUCT USED FOR UNKNOWN INDICATION

REACTIONS (3)
  - Myasthenia gravis [Recovering/Resolving]
  - Erythema [Unknown]
  - Rash morbilliform [Unknown]
